FAERS Safety Report 14837434 (Version 1)
Quarter: 2018Q2

REPORT INFORMATION
  Report Type: Spontaneous
  Country: US (occurrence: US)
  Receive Date: 20180502
  Receipt Date: 20180502
  Transmission Date: 20180711
  Serious: Yes (Hospitalization, Other)
  Sender: FDA-Public Use
  Company Number: US-ASTRAZENECA-2006BM00240

PATIENT
  Age: 85 Year
  Sex: Female

DRUGS (16)
  1. EDECRINE [Concomitant]
  2. LEVOXYL [Concomitant]
     Active Substance: LEVOTHYROXINE SODIUM
  3. ACTOS [Concomitant]
     Active Substance: PIOGLITAZONE HYDROCHLORIDE
     Dosage: UNK
  4. LISINOPRIL. [Concomitant]
     Active Substance: LISINOPRIL
  5. AMARYL [Concomitant]
     Active Substance: GLIMEPIRIDE
  6. BUMEX [Concomitant]
     Active Substance: BUMETANIDE
     Dosage: UNK
  7. ATENOLOL. [Concomitant]
     Active Substance: ATENOLOL
     Indication: DIABETES MELLITUS
     Dates: end: 20060221
  8. COREG [Concomitant]
     Active Substance: CARVEDILOL
  9. KLOR-CON [Concomitant]
     Active Substance: POTASSIUM CHLORIDE
     Dosage: UNK
  10. FOSAMAX [Concomitant]
     Active Substance: ALENDRONATE SODIUM
     Dosage: 70.0MG UNKNOWN
  11. PREDNISONE. [Concomitant]
     Active Substance: PREDNISONE
  12. NORVASC [Concomitant]
     Active Substance: AMLODIPINE BESYLATE
  13. CRESTOR [Concomitant]
     Active Substance: ROSUVASTATIN CALCIUM
  14. ASPIRIN. [Concomitant]
     Active Substance: ASPIRIN
  15. CYMBALTA [Concomitant]
     Active Substance: DULOXETINE HYDROCHLORIDE
  16. BYETTA [Suspect]
     Active Substance: EXENATIDE
     Indication: TYPE 2 DIABETES MELLITUS
     Route: 058
     Dates: start: 20060219, end: 20060220

REACTIONS (11)
  - Cardiac failure congestive [Not Recovered/Not Resolved]
  - Aortic arteriosclerosis [Unknown]
  - Atrioventricular block first degree [Recovered/Resolved]
  - Sinus arrest [Recovered/Resolved]
  - Hypoglycaemia [Recovered/Resolved]
  - Syncope [Recovered/Resolved]
  - Hypotension [Unknown]
  - Bradycardia [Unknown]
  - Supraventricular extrasystoles [Unknown]
  - Acute myocardial infarction [Recovered/Resolved with Sequelae]
  - Coronary artery stenosis [Unknown]

NARRATIVE: CASE EVENT DATE: 20060220
